FAERS Safety Report 6574929-2 (Version None)
Quarter: 2010Q1

REPORT INFORMATION
  Report Type: 
  Country: None (occurrence: None)
  Receive Date: 20100209
  Receipt Date: 20100203
  Transmission Date: 20100710
  Serious: Yes (Death, Hospitalization, Other)
  Sender: FDA-Public Use
  Company Number: US-BAYER-201014728GPV

PATIENT
  Age: 28 Year
  Sex: Female

DRUGS (5)
  1. ALEMTUZUMAB [Suspect]
     Indication: IMMUNOSUPPRESSION
  2. CORTICOSTEROIDS [Suspect]
     Indication: IMMUNOSUPPRESSION
  3. TACROLIMUS [Suspect]
     Indication: IMMUNOSUPPRESSION
  4. RAPAMYCIN [Suspect]
     Indication: IMMUNOSUPPRESSION
  5. METHYLPREDNISOLONE [Suspect]
     Indication: IMMUNOSUPPRESSION

REACTIONS (11)
  - ACID FAST BACILLI INFECTION [None]
  - ARTHRITIS [None]
  - ARTHRITIS BACTERIAL [None]
  - BREAST MASS [None]
  - CREATININE RENAL CLEARANCE DECREASED [None]
  - EPSTEIN-BARR VIRUS ASSOCIATED LYMPHOPROLIFERATIVE DISORDER [None]
  - HERPES ZOSTER [None]
  - INTESTINE TRANSPLANT REJECTION [None]
  - MULTI-ORGAN FAILURE [None]
  - MYCOBACTERIUM ABSCESSUS INFECTION [None]
  - TRANSPLANT REJECTION [None]
